FAERS Safety Report 9331083 (Version 1)
Quarter: 2013Q2

REPORT INFORMATION
  Report Type: Spontaneous
  Country: US (occurrence: NL)
  Receive Date: 20130605
  Receipt Date: 20130605
  Transmission Date: 20140414
  Serious: Yes (Other)
  Sender: FDA-Public Use
  Company Number: NL-BRISTOL-MYERS SQUIBB COMPANY-18977330

PATIENT
  Age: 60 Year
  Sex: Female

DRUGS (1)
  1. ABILIFY TABS [Suspect]
     Indication: SCHIZOPHRENIA
     Dosage: REDUCED TO 10 MG
     Route: 048

REACTIONS (3)
  - Psychotic disorder [Unknown]
  - Restlessness [Unknown]
  - Feeling abnormal [Unknown]
